FAERS Safety Report 23159280 (Version 4)
Quarter: 2023Q4

REPORT INFORMATION
  Report Type: Spontaneous
  Country: PR (occurrence: PR)
  Receive Date: 20231108
  Receipt Date: 20231228
  Transmission Date: 20240109
  Serious: No
  Sender: FDA-Public Use
  Company Number: PR-PFIZER INC-202300295582

PATIENT
  Age: 31 Year
  Sex: Male
  Weight: 98.866 kg

DRUGS (1)
  1. GENOTROPIN [Suspect]
     Active Substance: SOMATROPIN
     Dosage: 0.6 MG, 1X/DAY
     Route: 058
     Dates: start: 20181226

REACTIONS (5)
  - Poor quality device used [Unknown]
  - Device issue [Unknown]
  - Expired device used [Unknown]
  - Device malfunction [Unknown]
  - Wrong technique in product usage process [Unknown]
